FAERS Safety Report 6075295-1 (Version None)
Quarter: 2009Q1

REPORT INFORMATION
  Report Type: 
  Country: None (occurrence: None)
  Receive Date: 20090212
  Receipt Date: 20090209
  Transmission Date: 20090719
  Serious: Yes (Other)
  Sender: FDA-Public Use
  Company Number: PHHY2009DE03414

PATIENT
  Sex: Female

DRUGS (2)
  1. CAFERGOT [Suspect]
     Route: 054
  2. IBUPROFEN TABLETS [Concomitant]
     Route: 048

REACTIONS (2)
  - CARDIAC VALVE DISEASE [None]
  - SURGERY [None]
